FAERS Safety Report 22614433 (Version 1)
Quarter: 2023Q2

REPORT INFORMATION
  Report Type: Report from Study
  Country: US (occurrence: US)
  Receive Date: 20230619
  Receipt Date: 20230619
  Transmission Date: 20230722
  Serious: Yes (Other)
  Sender: FDA-Public Use
  Company Number: US-ABBVIE-5293908

PATIENT
  Sex: Male

DRUGS (1)
  1. HUMIRA [Suspect]
     Active Substance: ADALIMUMAB
     Indication: Crohn^s disease
     Dosage: CITRATE FREE  FORM STRENGTH - 40 MG
     Route: 058
     Dates: start: 20190502

REACTIONS (2)
  - Systemic lupus erythematosus [Unknown]
  - Arthritis [Unknown]
